FAERS Safety Report 9202876 (Version 2)
Quarter: 2015Q1

REPORT INFORMATION
  Report Type: Report from Study
  Country: BR (occurrence: BR)
  Receive Date: 20130402
  Receipt Date: 20150324
  Transmission Date: 20150721
  Serious: Yes (Hospitalization)
  Sender: FDA-Public Use
  Company Number: BR-BIOGENIDEC-2013BI025072

PATIENT
  Age: 30 Year
  Sex: Female
  Weight: 61 kg

DRUGS (2)
  1. AVONEX [Suspect]
     Active Substance: INTERFERON BETA-1A
     Indication: MULTIPLE SCLEROSIS
     Route: 030
     Dates: start: 20130308
  2. AVONEX [Suspect]
     Active Substance: INTERFERON BETA-1A
     Indication: MULTIPLE SCLEROSIS
     Route: 030
     Dates: start: 20120608, end: 20130215

REACTIONS (16)
  - Fear [Unknown]
  - Arthralgia [Unknown]
  - Pyrexia [Unknown]
  - Hypoaesthesia [Recovered/Resolved]
  - Hiccups [Recovered/Resolved]
  - Dysgeusia [Recovered/Resolved]
  - Muscular weakness [Recovered/Resolved]
  - Memory impairment [Unknown]
  - Pain [Unknown]
  - Dysphagia [Recovered/Resolved]
  - Choking [Recovered/Resolved]
  - Paraesthesia [Recovered/Resolved]
  - Intentional product misuse [Unknown]
  - Chills [Unknown]
  - Optic neuritis [Recovered/Resolved]
  - Speech disorder [Recovered/Resolved]

NARRATIVE: CASE EVENT DATE: 20121215
